FAERS Safety Report 23098330 (Version 2)
Quarter: 2023Q4

REPORT INFORMATION
  Report Type: Report from Study
  Country: RO (occurrence: RO)
  Receive Date: 20231023
  Receipt Date: 20231103
  Transmission Date: 20240110
  Serious: Yes (Hospitalization)
  Sender: FDA-Public Use
  Company Number: RO-Eisai-EC-2023-150999

PATIENT
  Age: 63 Year
  Sex: Male
  Weight: 59.0 kg

DRUGS (6)
  1. LENVATINIB [Suspect]
     Active Substance: LENVATINIB
     Indication: Squamous cell carcinoma of head and neck
     Dosage: QD, 9 HRS 15 MIN
     Route: 048
     Dates: start: 20231002, end: 20231022
  2. MORPHINE [Concomitant]
     Active Substance: MORPHINE
     Dates: start: 202308
  3. DIPYRONE [Concomitant]
     Active Substance: DIPYRONE
     Dates: start: 202308
  4. ACETAMINOPHEN [Concomitant]
     Active Substance: ACETAMINOPHEN
     Dates: start: 202308
  5. GABAPENTIN [Concomitant]
     Active Substance: GABAPENTIN
     Dates: start: 202308
  6. BISACODYL [Concomitant]
     Active Substance: BISACODYL
     Dates: start: 202308

REACTIONS (1)
  - Sepsis [Not Recovered/Not Resolved]

NARRATIVE: CASE EVENT DATE: 20231012
